FAERS Safety Report 25979932 (Version 1)
Quarter: 2025Q4

REPORT INFORMATION
  Report Type: Spontaneous
  Country: EU (occurrence: EU)
  Receive Date: 20251030
  Receipt Date: 20251030
  Transmission Date: 20260117
  Serious: Yes (Other)
  Sender: MELINTA THERAPEUTICS
  Company Number: None

PATIENT

DRUGS (4)
  1. ORITAVANCIN [Suspect]
     Active Substance: ORITAVANCIN
     Indication: Endocarditis
     Dosage: 1200 MILLIGRAM, QD
     Route: 042
     Dates: start: 20250613, end: 20250718
  2. SIVEXTRO [Interacting]
     Active Substance: TEDIZOLID PHOSPHATE
     Indication: Endocarditis
     Dosage: 200 MILLIGRAM, QD
     Route: 048
     Dates: start: 20250613, end: 20250718
  3. CEFTAROLINE FOSAMIL [Interacting]
     Active Substance: CEFTAROLINE FOSAMIL
     Indication: Endocarditis
     Dosage: 1200 MILLIGRAM, QD
     Route: 042
     Dates: start: 20250602, end: 20250613
  4. DAPTOMYCIN [Interacting]
     Active Substance: DAPTOMYCIN
     Indication: Endocarditis
     Dosage: 550 MILLIGRAM, QD
     Route: 042
     Dates: start: 20250602, end: 20250613

REACTIONS (4)
  - Dental caries [Recovered/Resolved with Sequelae]
  - Drug interaction [Recovered/Resolved]
  - Product use in unapproved indication [Recovered/Resolved]
  - Incorrect product administration duration [Recovered/Resolved]

NARRATIVE: CASE EVENT DATE: 20250613
